FAERS Safety Report 22142015 (Version 1)
Quarter: 2023Q1

REPORT INFORMATION
  Report Type: Spontaneous
  Country: CN (occurrence: CN)
  Receive Date: 20230327
  Receipt Date: 20230327
  Transmission Date: 20230418
  Serious: Yes (Life-Threatening, Hospitalization, Other)
  Sender: FDA-Public Use
  Company Number: CN-MYLANLABS-2023M1031689

PATIENT
  Age: 63 Year
  Sex: Male

DRUGS (7)
  1. ATORVASTATIN CALCIUM [Suspect]
     Active Substance: ATORVASTATIN CALCIUM
     Indication: Cerebral infarction
     Dosage: 20 MILLIGRAM, QD
     Route: 048
     Dates: end: 20220106
  2. ROSUVASTATIN [Suspect]
     Active Substance: ROSUVASTATIN
     Indication: Product used for unknown indication
     Dosage: 5 MILLIGRAM, QD
     Route: 048
     Dates: start: 20220115
  3. BUTYLPHTHALIDE;SODIUM CHLORIDE [Concomitant]
     Indication: Cerebral infarction
     Dosage: 25 MILLIGRAM, BID
     Route: 042
     Dates: end: 20220106
  4. Edaravone and dexborneol [Concomitant]
     Indication: Cerebral infarction
     Dosage: 15 MILLILITER, BID
     Route: 042
     Dates: end: 20220106
  5. HERBALS\PANAX NOTOGINSENG ROOT EXTRACT [Concomitant]
     Active Substance: HERBALS\PANAX NOTOGINSENG ROOT EXTRACT
     Indication: Cerebral infarction
     Dosage: 450 MILLIGRAM, BID
     Route: 065
     Dates: end: 20220106
  6. ASPIRIN [Concomitant]
     Active Substance: ASPIRIN
     Indication: Cerebral infarction
     Dosage: 100 MILLIGRAM, QD
     Route: 048
     Dates: end: 20220106
  7. BUTYLPHTHALIDE [Concomitant]
     Active Substance: BUTYLPHTHALIDE
     Indication: Cerebral infarction
     Dosage: 0.2 GRAM, TID
     Route: 048
     Dates: end: 20220106

REACTIONS (1)
  - Drug reaction with eosinophilia and systemic symptoms [Recovering/Resolving]
